FAERS Safety Report 16870323 (Version 1)
Quarter: 2019Q3

REPORT INFORMATION
  Report Type: Report from Study
  Country: CO (occurrence: CO)
  Receive Date: 20190930
  Receipt Date: 20190930
  Transmission Date: 20191005
  Serious: Yes (Hospitalization, Other)
  Sender: FDA-Public Use
  Company Number: CO-VIFOR (INTERNATIONAL) INC.-VIT-2019-09343

PATIENT
  Age: 72 Year
  Sex: Male

DRUGS (2)
  1. MIRCERA [Suspect]
     Active Substance: METHOXY POLYETHYLENE GLYCOL-EPOETIN BETA
     Indication: NEPHROGENIC ANAEMIA
     Route: 058
     Dates: start: 20130311
  2. MIRCERA [Suspect]
     Active Substance: METHOXY POLYETHYLENE GLYCOL-EPOETIN BETA
     Route: 058

REACTIONS (6)
  - Secondary hypertension [Recovered/Resolved]
  - Peripheral vascular disorder [Unknown]
  - Toe amputation [Recovered/Resolved with Sequelae]
  - Ischaemic limb pain [Recovered/Resolved with Sequelae]
  - Acute myocardial infarction [Recovered/Resolved]
  - Anaemia [Recovered/Resolved]

NARRATIVE: CASE EVENT DATE: 20160321
